FAERS Safety Report 10304849 (Version 1)
Quarter: 2014Q3

REPORT INFORMATION
  Report Type: Spontaneous
  Country: US (occurrence: None)
  Receive Date: 20140710
  Receipt Date: 20140710
  Transmission Date: 20150326
  Serious: Yes (Hospitalization, Disabling, Other)
  Sender: FDA-Public Use
  Company Number: None

PATIENT
  Age: 51 Year
  Sex: Female
  Weight: 68.04 kg

DRUGS (1)
  1. CIPROFLOXACIN. [Suspect]
     Active Substance: CIPROFLOXACIN
     Indication: PSEUDOMONAS INFECTION
     Route: 042
     Dates: start: 20131210, end: 20131213

REACTIONS (11)
  - Arthralgia [None]
  - Psychotic disorder [None]
  - Anaemia [None]
  - Cardiac disorder [None]
  - Panic attack [None]
  - Hallucination [None]
  - Sleep disorder [None]
  - Pollakiuria [None]
  - Feeling abnormal [None]
  - Insomnia [None]
  - Dehydration [None]

NARRATIVE: CASE EVENT DATE: 20131210
